FAERS Safety Report 9538881 (Version 2)
Quarter: 2014Q1

REPORT INFORMATION
  Report Type: Report from Study
  Country: US (occurrence: US)
  Receive Date: 20130920
  Receipt Date: 20140114
  Transmission Date: 20141002
  Serious: Yes (Hospitalization)
  Sender: FDA-Public Use
  Company Number: US-SANOFI-AVENTIS-2013SA092718

PATIENT
  Sex: Male
  Weight: 96.2 kg

DRUGS (4)
  1. CABAZITAXEL [Suspect]
     Indication: PROSTATE CANCER METASTATIC
     Route: 042
     Dates: start: 20130723, end: 20130723
  2. CABAZITAXEL [Suspect]
     Indication: PROSTATE CANCER METASTATIC
     Route: 042
     Dates: start: 20130903, end: 20130903
  3. DOCETAXEL [Concomitant]
  4. PREDNISONE [Concomitant]
     Route: 048
     Dates: start: 20130723, end: 20130910

REACTIONS (1)
  - Pulmonary embolism [Not Recovered/Not Resolved]
